FAERS Safety Report 25277832 (Version 1)
Quarter: 2025Q2

REPORT INFORMATION
  Report Type: Spontaneous
  Country: US (occurrence: US)
  Receive Date: 20250507
  Receipt Date: 20250507
  Transmission Date: 20250716
  Serious: Yes (Other)
  Sender: STRIDES
  Company Number: US-STRIDES ARCOLAB LIMITED-2025SP005351

PATIENT
  Age: 43 Year
  Sex: Male

DRUGS (9)
  1. METHOTREXATE SODIUM [Interacting]
     Active Substance: METHOTREXATE SODIUM
     Indication: Immune-mediated arthritis
     Route: 048
  2. METHOTREXATE SODIUM [Interacting]
     Active Substance: METHOTREXATE SODIUM
     Indication: Seronegative arthritis
  3. PREDNISONE [Suspect]
     Active Substance: PREDNISONE
     Indication: Immune-mediated arthritis
     Route: 065
  4. PREDNISONE [Suspect]
     Active Substance: PREDNISONE
     Indication: Seronegative arthritis
  5. PEMBROLIZUMAB [Interacting]
     Active Substance: PEMBROLIZUMAB
     Indication: Hodgkin^s disease stage IV
     Route: 065
  6. BRENTUXIMAB VEDOTIN [Concomitant]
     Active Substance: BRENTUXIMAB VEDOTIN
     Indication: Hodgkin^s disease stage IV
     Route: 065
  7. VINBLASTINE [Concomitant]
     Active Substance: VINBLASTINE
     Indication: Hodgkin^s disease stage IV
     Route: 065
  8. EVEROLIMUS [Concomitant]
     Active Substance: EVEROLIMUS
     Indication: Hodgkin^s disease stage IV
     Route: 065
  9. GEMCITABINE [Concomitant]
     Active Substance: GEMCITABINE
     Indication: Hodgkin^s disease stage IV
     Route: 065

REACTIONS (4)
  - Drug interaction [Unknown]
  - Neoplasm progression [Recovered/Resolved]
  - Arthritis [Unknown]
  - Therapy partial responder [Unknown]
